FAERS Safety Report 9456304 (Version 2)
Quarter: 2013Q3

REPORT INFORMATION
  Report Type: Spontaneous
  Country: JP (occurrence: JP)
  Receive Date: 20130813
  Receipt Date: 20130903
  Transmission Date: 20140515
  Serious: Yes (Other)
  Sender: FDA-Public Use
  Company Number: JP-ASTRAZENECA-2013SE62609

PATIENT
  Sex: 0

DRUGS (1)
  1. SYMBICORT TURBUHALER [Suspect]
     Indication: ASTHMA
     Dosage: DOSE UNKNOWN ON UNKNOWN FREQUENCY
     Route: 055

REACTIONS (1)
  - Neoplasm malignant [Unknown]
